FAERS Safety Report 21780113 (Version 1)
Quarter: 2022Q4

REPORT INFORMATION
  Report Type: Spontaneous
  Country: DK (occurrence: DK)
  Receive Date: 20221226
  Receipt Date: 20221226
  Transmission Date: 20230113
  Serious: Yes (Other)
  Sender: FDA-Public Use
  Company Number: DK-TEVA-2022-DK-2838698

PATIENT
  Age: 68 Year
  Sex: Female

DRUGS (3)
  1. HYDROCHLOROTHIAZIDE\LOSARTAN [Suspect]
     Active Substance: HYDROCHLOROTHIAZIDE\LOSARTAN
     Indication: Blood pressure increased
     Dosage: STRENGTH: 50MG/12.5 MG X1 PER DAY
     Route: 065
  2. SIMVASTATIN [Concomitant]
     Active Substance: SIMVASTATIN
     Indication: Product used for unknown indication
     Route: 065
  3. Hjertemagnyl [Concomitant]
     Indication: Product used for unknown indication
     Route: 065

REACTIONS (4)
  - Dyspnoea [Unknown]
  - Therapeutic product effect variable [Unknown]
  - Heart rate increased [Unknown]
  - Product packaging issue [Unknown]

NARRATIVE: CASE EVENT DATE: 20220101
